FAERS Safety Report 5638461-2 (Version None)
Quarter: 2008Q1

REPORT INFORMATION
  Report Type: 
  Country: None (occurrence: None)
  Receive Date: 20080221
  Receipt Date: 20080221
  Transmission Date: 20080703
  Serious: Yes (Hospitalization)
  Sender: FDA-Public Use
  Company Number: None

PATIENT
  Age: 59 Year
  Sex: Female
  Weight: 120 kg

DRUGS (1)
  1. WARFARIN SODIUM [Suspect]
     Indication: PULMONARY EMBOLISM
     Dosage: DOSE NOT DOCUMENTED?  DAILY  PO
     Route: 048
     Dates: start: 20070701, end: 20071001

REACTIONS (1)
  - INTERNATIONAL NORMALISED RATIO INCREASED [None]
